FAERS Safety Report 18377645 (Version 1)
Quarter: 2020Q4

REPORT INFORMATION
  Report Type: Other
  Country: IT (occurrence: IT)
  Receive Date: 20201013
  Receipt Date: 20201013
  Transmission Date: 20210114
  Serious: Yes (Death)
  Sender: FDA-Public Use
  Company Number: IT-ROCHE-2693238

PATIENT

DRUGS (6)
  1. TRASTUZUMAB. [Suspect]
     Active Substance: TRASTUZUMAB
     Dosage: 2 MG/KG (FOURTH-LINE CT)
     Route: 065
  2. VINORELBINE [Suspect]
     Active Substance: VINORELBINE TARTRATE
     Indication: SALIVARY GLAND CANCER
     Dosage: 25 MG/M2 ON DAYS 1 AND 8 OF 21-DAY CYLCE
     Route: 065
  3. CARBOPLATIN. [Suspect]
     Active Substance: CARBOPLATIN
     Indication: SALIVARY GLAND CANCER
     Dosage: AUC2, WEEKLY (FOURTH-LINE CT)
     Route: 065
  4. TRASTUZUMAB. [Suspect]
     Active Substance: TRASTUZUMAB
     Indication: SALIVARY GLAND CANCER
     Dosage: 6 MG/KG (3-WEEKLY)
     Route: 065
  5. TRASTUZUMAB. [Suspect]
     Active Substance: TRASTUZUMAB
     Dosage: 4 MG/KG (FOURTH-LINE CT, LOADING DOSE)
     Route: 065
  6. PACLITAXEL. [Suspect]
     Active Substance: PACLITAXEL
     Indication: SALIVARY GLAND CANCER
     Dosage: 80 MG/M2 (FOURTH-LINE CT)
     Route: 065

REACTIONS (7)
  - Intentional product use issue [Unknown]
  - Febrile neutropenia [Fatal]
  - Death [Fatal]
  - Streptococcal endocarditis [Fatal]
  - Off label use [Fatal]
  - Ejection fraction decreased [Fatal]
  - Pneumonia [Fatal]
